FAERS Safety Report 15248946 (Version 2)
Quarter: 2018Q3

REPORT INFORMATION
  Report Type: Spontaneous
  Country: US (occurrence: US)
  Receive Date: 20180807
  Receipt Date: 20180808
  Transmission Date: 20181010
  Serious: No
  Sender: FDA-Public Use
  Company Number: US-PFIZER INC-2018311232

PATIENT
  Sex: Male

DRUGS (1)
  1. SIROLIMUS. [Suspect]
     Active Substance: SIROLIMUS
     Dosage: 2 MG, UNK

REACTIONS (2)
  - Pruritus [Unknown]
  - Breast enlargement [Unknown]
